FAERS Safety Report 19644254 (Version 1)
Quarter: 2021Q3

REPORT INFORMATION
  Report Type: Spontaneous
  Country: ZA (occurrence: ZA)
  Receive Date: 20210801
  Receipt Date: 20210801
  Transmission Date: 20211014
  Serious: Yes (Hospitalization, Other)
  Sender: FDA-Public Use
  Company Number: ZA-TEVA-2021-ZA-1930505

PATIENT
  Age: 54 Year

DRUGS (1)
  1. METHOTREXATE TABLETS, USP 2.5 MG [Suspect]
     Active Substance: METHOTREXATE

REACTIONS (1)
  - Breast abscess [Not Recovered/Not Resolved]
